FAERS Safety Report 8371976 (Version 2)
Quarter: 2013Q1

REPORT INFORMATION
  Report Type: Spontaneous
  Country: PR (occurrence: PR)
  Receive Date: 20120129
  Receipt Date: 20130129
  Transmission Date: 20140127
  Serious: No
  Sender: FDA-Public Use
  Company Number: PR-ABBOTT-11P-131-0884238-00

PATIENT
  Age: 77 Year
  Sex: Female
  Weight: 52.21 kg

DRUGS (16)
  1. HUMIRA 40 MG/0.8 ML PEN [Suspect]
     Indication: RHEUMATOID ARTHRITIS
     Route: 058
     Dates: end: 20111215
  2. HUMIRA 40 MG/0.8 ML PEN [Suspect]
     Route: 058
     Dates: end: 20120518
  3. SINGULAIR [Concomitant]
     Indication: ASTHMA
     Dosage: AT BEDTIME
     Route: 048
  4. PROVENTIL [Concomitant]
     Indication: ASTHMA
     Dosage: 3 PUMPS (INHALATION) IN AFTERNOON
     Route: 048
  5. ADVAIR [Concomitant]
     Indication: ASTHMA
     Dosage: ORAL INHALATION Q12 HOURS AS NEEDED
     Route: 047
  6. SPIRIVA [Concomitant]
     Indication: ASTHMA
     Dosage: 1 ORAL INHALATION DAILY
     Dates: start: 201204
  7. CALCIUM [Concomitant]
     Indication: RHEUMATOID ARTHRITIS
     Route: 048
  8. METHOTREXATE [Concomitant]
     Indication: RHEUMATOID ARTHRITIS
     Dosage: 10 TABLETS (25 MG) WEEKLY
     Route: 048
  9. FOLIC ACID [Concomitant]
     Indication: RHEUMATOID ARTHRITIS
     Route: 048
  10. NEURONTIN [Concomitant]
     Indication: RHEUMATOID ARTHRITIS
     Dosage: AT MORNING
     Route: 048
  11. NEURONTIN [Concomitant]
     Dosage: AT BEDTIME
     Route: 048
  12. PLAQUENIL [Concomitant]
     Indication: RHEUMATOID ARTHRITIS
     Route: 048
  13. PREDNISONE [Concomitant]
     Indication: RHEUMATOID ARTHRITIS
     Dosage: DAILY
     Route: 048
  14. FORTEO [Concomitant]
     Indication: RHEUMATOID ARTHRITIS
     Dosage: 1 INJECTION DAILY
     Route: 058
     Dates: start: 2010
  15. ULTRACET [Concomitant]
     Indication: RHEUMATOID ARTHRITIS
     Dosage: EVERY 12 HOURS AS REQUIRED
     Route: 048
     Dates: start: 201205
  16. NEXIUM [Concomitant]
     Indication: PRODUCT USED FOR UNKNOWN INDICATION
     Route: 048

REACTIONS (4)
  - Fatigue [Recovered/Resolved]
  - Drug dose omission [Unknown]
  - Herpes zoster [Not Recovered/Not Resolved]
  - Hypercholesterolaemia [Not Recovered/Not Resolved]
